FAERS Safety Report 9698100 (Version 3)
Quarter: 2013Q4

REPORT INFORMATION
  Report Type: Spontaneous
  Country: JP (occurrence: JP)
  Receive Date: 20131120
  Receipt Date: 20131212
  Transmission Date: 20140711
  Serious: Yes (Hospitalization)
  Sender: FDA-Public Use
  Company Number: JP-JNJFOC-20131109529

PATIENT
  Age: 9 Decade
  Sex: Male

DRUGS (1)
  1. TRAMCET [Suspect]
     Indication: PAIN
     Route: 048
     Dates: start: 201210, end: 20131114

REACTIONS (5)
  - Dyskinesia [Recovering/Resolving]
  - Hemiplegia [Recovered/Resolved]
  - Altered state of consciousness [Recovered/Resolved]
  - Aphasia [Recovered/Resolved]
  - Renal impairment [Recovered/Resolved]
